FAERS Safety Report 9506945 (Version 1)
Quarter: 2013Q3

REPORT INFORMATION
  Report Type: Report from Study
  Country: CA (occurrence: CA)
  Receive Date: 20130909
  Receipt Date: 20130909
  Transmission Date: 20140515
  Serious: Yes (Hospitalization)
  Sender: FDA-Public Use
  Company Number: CA-UCBSA-096481

PATIENT
  Age: 55 Year
  Sex: Female
  Weight: 92.53 kg

DRUGS (9)
  1. CIMZIA [Suspect]
     Indication: RHEUMATOID ARTHRITIS
     Route: 058
     Dates: start: 20121128
  2. CIMZIA [Suspect]
     Indication: RHEUMATOID ARTHRITIS
     Dosage: ONCE IN 2 WEEKS (THRICE)
     Route: 058
     Dates: start: 20121022, end: 20121114
  3. METHOTREXATE [Concomitant]
     Indication: RHEUMATOID ARTHRITIS
     Route: 048
  4. ASA [Concomitant]
     Indication: ANTICOAGULATION DRUG LEVEL
     Route: 048
  5. HYDROXYCHLOROQUINE [Concomitant]
     Indication: RHEUMATOID ARTHRITIS
     Route: 048
  6. CYMBALTA [Concomitant]
     Route: 048
  7. RAMIPRIL [Concomitant]
     Indication: HYPERTENSION
     Route: 048
  8. NAPROSYN [Concomitant]
     Indication: RHEUMATOID ARTHRITIS
     Route: 048
  9. FOLIC ACID [Concomitant]
     Indication: GENERAL PHYSICAL HEALTH DETERIORATION
     Dosage: 5 MG 6 DAYS/WEEK
     Route: 048

REACTIONS (5)
  - Cholecystitis [Recovered/Resolved]
  - Cholelithiasis [Recovered/Resolved]
  - Pancreatitis [Recovering/Resolving]
  - Hepatic cyst [Recovering/Resolving]
  - Nasopharyngitis [Recovering/Resolving]
